FAERS Safety Report 11554003 (Version 3)
Quarter: 2015Q4

REPORT INFORMATION
  Report Type: Report from Study
  Country: JP (occurrence: JP)
  Receive Date: 20150925
  Receipt Date: 20151116
  Transmission Date: 20160304
  Serious: Yes (Death, Hospitalization, Other)
  Sender: FDA-Public Use
  Company Number: JP-BRISTOL-MYERS SQUIBB COMPANY-BMS-2015-063476

PATIENT
  Age: 68 Year
  Sex: Male
  Weight: 53 kg

DRUGS (8)
  1. CETUXIMAB [Suspect]
     Active Substance: CETUXIMAB
     Dosage: 402.5 MG, QWK
     Route: 041
     Dates: start: 20150727
  2. CETUXIMAB [Suspect]
     Active Substance: CETUXIMAB
     Dosage: 404.5 MG, QWK
     Route: 041
     Dates: start: 20150803, end: 20150803
  3. CETUXIMAB [Suspect]
     Active Substance: CETUXIMAB
     Dosage: 399.5 MG, QWK
     Route: 041
     Dates: start: 20150810, end: 20150810
  4. CETUXIMAB [Suspect]
     Active Substance: CETUXIMAB
     Dosage: 402.5 MG, QWK
     Route: 041
     Dates: start: 20150629
  5. CETUXIMAB [Suspect]
     Active Substance: CETUXIMAB
     Dosage: 402.5 MG, QWK
     Route: 041
     Dates: start: 20150706
  6. 5-FU                               /00098801/ [Suspect]
     Active Substance: FLUOROURACIL
     Indication: LARYNGEAL CANCER RECURRENT
     Dosage: 800 MG/M2, Q3WK
     Route: 041
     Dates: start: 20150623, end: 20150626
  7. CETUXIMAB [Suspect]
     Active Substance: CETUXIMAB
     Indication: LARYNGEAL CANCER RECURRENT
     Dosage: 5 MG/ML, UNK
     Route: 041
     Dates: start: 20150622, end: 20150622
  8. CISPLATIN. [Suspect]
     Active Substance: CISPLATIN
     Indication: LARYNGEAL CANCER RECURRENT
     Dosage: 80 MG/M2, Q3WK
     Route: 041
     Dates: start: 20150622, end: 20150622

REACTIONS (4)
  - Weight decreased [Unknown]
  - Haematochezia [Fatal]
  - Acute respiratory distress syndrome [Fatal]
  - Diarrhoea [Fatal]

NARRATIVE: CASE EVENT DATE: 20150810
